FAERS Safety Report 23664879 (Version 2)
Quarter: 2024Q1

REPORT INFORMATION
  Report Type: Spontaneous
  Country: BE (occurrence: BE)
  Receive Date: 20240322
  Receipt Date: 20240322
  Transmission Date: 20240410
  Serious: Yes (Disabling)
  Sender: FDA-Public Use
  Company Number: BE-FAMHP-DHH-N2024-121714

PATIENT
  Age: 51 Year
  Sex: Female
  Weight: 79.8 kg

DRUGS (2)
  1. ASCLERA [Suspect]
     Active Substance: POLIDOCANOL
     Indication: Varicose vein
     Route: 042
     Dates: start: 20240201, end: 20240201
  2. L-Thyroxine Christiaens 25 ?g, comprim?s [Concomitant]
     Indication: Hypothyroidism

REACTIONS (2)
  - Influenza like illness [Recovered/Resolved]
  - Erythema nodosum [Recovered/Resolved]

NARRATIVE: CASE EVENT DATE: 20240205
